FAERS Safety Report 19937926 (Version 1)
Quarter: 2021Q4

REPORT INFORMATION
  Report Type: Spontaneous
  Country: US (occurrence: US)
  Receive Date: 20211011
  Receipt Date: 20211011
  Transmission Date: 20220303
  Serious: No
  Sender: FDA-Public Use
  Company Number: US-ROCHE-2851111

PATIENT
  Sex: Female

DRUGS (5)
  1. EVRYSDI [Suspect]
     Active Substance: RISDIPLAM
     Indication: Spinal muscular atrophy
     Dosage: 5 MG OR 6.6 ML ;ONGOING: YES
     Route: 048
     Dates: start: 2021
  2. HYDROCHLOROTHIAZIDE [Concomitant]
     Active Substance: HYDROCHLOROTHIAZIDE
  3. MIRENA [Concomitant]
     Active Substance: LEVONORGESTREL
  4. GLUCOSAMINE CHONDROITIN COMPLEX ADVANV (UNK INGREDIENTS) [Concomitant]
  5. VITAMIN D [Concomitant]
     Active Substance: VITAMIN D NOS

REACTIONS (3)
  - Headache [Not Recovered/Not Resolved]
  - Product packaging quantity issue [Unknown]
  - Arthralgia [Unknown]
